FAERS Safety Report 9889341 (Version 2)
Quarter: 2014Q1

REPORT INFORMATION
  Report Type: Spontaneous
  Country: US (occurrence: US)
  Receive Date: 20140211
  Receipt Date: 20140224
  Transmission Date: 20141002
  Serious: Yes (Other)
  Sender: FDA-Public Use
  Company Number: US-ASTELLAS-2014US001418

PATIENT
  Age: 83 Year
  Sex: Female

DRUGS (2)
  1. TARCEVA [Suspect]
     Indication: LUNG NEOPLASM MALIGNANT
     Dosage: 150 MG, UNKNOWN/D
     Route: 065
  2. TARCEVA [Suspect]
     Dosage: 100 MG, UNKNOWN/D
     Route: 065

REACTIONS (11)
  - Pulmonary oedema [Unknown]
  - Alopecia [Unknown]
  - Hair growth abnormal [Recovering/Resolving]
  - Growth of eyelashes [Unknown]
  - Rash [Unknown]
  - Dry skin [Unknown]
  - Dry skin [Unknown]
  - Back pain [Recovering/Resolving]
  - Hair texture abnormal [Recovering/Resolving]
  - Chills [Unknown]
  - Cough [Unknown]
